FAERS Safety Report 22024001 (Version 1)
Quarter: 2023Q1

REPORT INFORMATION
  Report Type: Spontaneous
  Country: US (occurrence: US)
  Receive Date: 20230223
  Receipt Date: 20230223
  Transmission Date: 20230417
  Serious: No
  Sender: FDA-Public Use
  Company Number: US-ROCHE-3002698

PATIENT
  Sex: Male
  Weight: 137.65 kg

DRUGS (7)
  1. XOLAIR [Suspect]
     Active Substance: OMALIZUMAB
     Indication: Idiopathic urticaria
     Route: 058
     Dates: start: 20210618, end: 20220106
  2. XOLAIR [Suspect]
     Active Substance: OMALIZUMAB
  3. XOLAIR [Suspect]
     Active Substance: OMALIZUMAB
  4. XOLAIR [Suspect]
     Active Substance: OMALIZUMAB
     Indication: Urticaria
     Dosage: 2 WEEKS
     Route: 058
     Dates: start: 20210618, end: 20220106
  5. XOLAIR [Suspect]
     Active Substance: OMALIZUMAB
  6. XOLAIR [Suspect]
     Active Substance: OMALIZUMAB
  7. CARVEDILOL [Concomitant]
     Active Substance: CARVEDILOL
     Dosage: 0.25
     Route: 048
     Dates: start: 20220108

REACTIONS (2)
  - Drug ineffective [Unknown]
  - No adverse event [Unknown]
